FAERS Safety Report 7021413-8 (Version None)
Quarter: 2010Q3

REPORT INFORMATION
  Report Type: 
  Country: None (occurrence: None)
  Receive Date: 20100929
  Receipt Date: 20100921
  Transmission Date: 20110219
  Serious: Yes (Other)
  Sender: FDA-Public Use
  Company Number: US-JNJCH-2010021547

PATIENT

DRUGS (1)
  1. BENADRYL [Suspect]
     Indication: RASH
     Dosage: TEXT:UNKNOWN
     Route: 048

REACTIONS (2)
  - DRUG INEFFECTIVE FOR UNAPPROVED INDICATION [None]
  - RASH [None]
